FAERS Safety Report 6624106-1 (Version None)
Quarter: 2010Q1

REPORT INFORMATION
  Report Type: 
  Country: None (occurrence: None)
  Receive Date: 20100310
  Receipt Date: 20100225
  Transmission Date: 20100710
  Serious: Yes (Hospitalization, Other)
  Sender: FDA-Public Use
  Company Number: JP-PFIZER INC-2010026021

PATIENT
  Age: 68 Year
  Sex: Female

DRUGS (2)
  1. GABAPEN [Suspect]
     Indication: PAIN
     Dosage: 400 MG, 1X/DAY
     Dates: start: 20100218, end: 20100223
  2. GABAPEN [Suspect]
     Dosage: 600 MG, 1X/DAY
     Dates: start: 20100224, end: 20100225

REACTIONS (6)
  - ARRHYTHMIA [None]
  - BLOOD PRESSURE DECREASED [None]
  - DEPRESSED LEVEL OF CONSCIOUSNESS [None]
  - HYPERBILIRUBINAEMIA [None]
  - HYPOGLYCAEMIA [None]
  - SOMNOLENCE [None]
